FAERS Safety Report 6570374-4 (Version None)
Quarter: 2010Q1

REPORT INFORMATION
  Report Type: 
  Country: None (occurrence: None)
  Receive Date: 20100204
  Receipt Date: 20100129
  Transmission Date: 20100710
  Serious: Yes (Hospitalization)
  Sender: FDA-Public Use
  Company Number: CA-JNJFOC-20091002718

PATIENT
  Age: 18 Year
  Sex: Female

DRUGS (5)
  1. LEVAMISOLE [Suspect]
     Indication: ACCIDENTAL EXPOSURE
     Route: 065
  2. COCAINE [Suspect]
     Indication: DRUG USE FOR UNKNOWN INDICATION
     Route: 065
  3. IBUPROFEN [Suspect]
     Indication: DRUG USE FOR UNKNOWN INDICATION
     Route: 065
  4. BENZYDAMINE [Suspect]
     Indication: DRUG USE FOR UNKNOWN INDICATION
     Route: 065
  5. METOCLOPRAMIDE [Suspect]
     Indication: DRUG USE FOR UNKNOWN INDICATION
     Route: 065

REACTIONS (7)
  - ACCIDENTAL EXPOSURE [None]
  - AGRANULOCYTOSIS [None]
  - ANTIPHOSPHOLIPID ANTIBODIES POSITIVE [None]
  - CANDIDIASIS [None]
  - CELLULITIS [None]
  - PERITONSILLAR ABSCESS [None]
  - PYREXIA [None]
